FAERS Safety Report 17537982 (Version 1)
Quarter: 2020Q1

REPORT INFORMATION
  Report Type: Spontaneous
  Country: US (occurrence: US)
  Receive Date: 20200313
  Receipt Date: 20200313
  Transmission Date: 20200409
  Serious: No
  Sender: FDA-Public Use
  Company Number: US-GLAXOSMITHKLINE-US2020041000

PATIENT
  Sex: Male

DRUGS (2)
  1. ALBUTEROL SULFATE INHALATION POWDER [Suspect]
     Active Substance: ALBUTEROL SULFATE
     Indication: RESPIRATORY FUME INHALATION DISORDER
     Dosage: 2 PUFF(S), PRN
     Route: 055
     Dates: start: 20200220
  2. FISH OIL [Concomitant]
     Active Substance: FISH OIL
     Indication: PRODUCT USED FOR UNKNOWN INDICATION
     Dosage: UNK

REACTIONS (9)
  - Urine abnormality [Unknown]
  - Overdose [Unknown]
  - Cough [Unknown]
  - Therapeutic response unexpected [Unknown]
  - Heart rate increased [Unknown]
  - Off label use [Unknown]
  - Productive cough [Unknown]
  - Dry mouth [Unknown]
  - Product use in unapproved indication [Unknown]
